FAERS Safety Report 15128170 (Version 1)
Quarter: 2018Q3

REPORT INFORMATION
  Report Type: Spontaneous
  Country: IE (occurrence: IE)
  Receive Date: 20180711
  Receipt Date: 20180711
  Transmission Date: 20181010
  Serious: Yes (Other)
  Sender: FDA-Public Use
  Company Number: IE-B.I. PHARMACEUTICALS,INC./RIDGEFIELD-2018-BI-035215

PATIENT
  Age: 22 Year
  Sex: Female

DRUGS (1)
  1. PRADAXA [Suspect]
     Active Substance: DABIGATRAN ETEXILATE MESYLATE
     Indication: CEREBRAL VENOUS THROMBOSIS
     Route: 065

REACTIONS (1)
  - Cerebral infarction [Unknown]
